FAERS Safety Report 5904405-9 (Version None)
Quarter: 2008Q4

REPORT INFORMATION
  Report Type: 
  Country: None (occurrence: None)
  Receive Date: 20081001
  Receipt Date: 20080930
  Transmission Date: 20090506
  Serious: Yes (Other)
  Sender: FDA-Public Use
  Company Number: FR-BRISTOL-MYERS SQUIBB COMPANY-14351498

PATIENT
  Sex: Male

DRUGS (2)
  1. CEFEPIME [Suspect]
  2. AMIKACIN SULFATE [Suspect]

REACTIONS (3)
  - CONVULSION [None]
  - ENCEPHALOPATHY [None]
  - OVERDOSE [None]
